FAERS Safety Report 8981143 (Version 1)
Quarter: 2012Q4

REPORT INFORMATION
  Report Type: 
  Country: US (occurrence: US)
  Receive Date: 20121221
  Receipt Date: 20121221
  Transmission Date: 20130627
  Serious: No
  Sender: FDA-Public Use
  Company Number: US-JHP PHARMACEUTICALS, LLC-JHP201200212

PATIENT
  Age: 28 Year
  Sex: Male

DRUGS (2)
  1. APLISOL DIAGNOSTIC ANTIGEN [Suspect]
     Indication: TUBERCULIN TEST
     Dosage: 0.1 ml, single
     Route: 023
     Dates: start: 20120419, end: 20120419
  2. APLISOL DIAGNOSTIC ANTIGEN [Suspect]
     Indication: ACCIDENTAL EXPOSURE TO PRODUCT
     Dosage: sprayed into eye
     Route: 050
     Dates: start: 20120419, end: 20120419

REACTIONS (2)
  - Accidental exposure to product [Recovered/Resolved]
  - No adverse event [Recovered/Resolved]
